FAERS Safety Report 13575263 (Version 2)
Quarter: 2017Q3

REPORT INFORMATION
  Report Type: Report from Study
  Country: NL (occurrence: NL)
  Receive Date: 20170524
  Receipt Date: 20170811
  Transmission Date: 20171127
  Serious: Yes (Hospitalization)
  Sender: FDA-Public Use
  Company Number: NL-AMGEN-NLDSL2017077223

PATIENT
  Age: 61 Year
  Sex: Female

DRUGS (2)
  1. XGEVA [Suspect]
     Active Substance: DENOSUMAB
     Indication: PROPHYLAXIS
     Dosage: 120 MG IN 1.7 ML, Q4WK
     Route: 058
  2. XGEVA [Suspect]
     Active Substance: DENOSUMAB
     Dosage: 120 MG IN 1.7 ML, Q4WK
     Route: 058

REACTIONS (3)
  - Infection [Unknown]
  - Pyrexia [Unknown]
  - Hospice care [Unknown]

NARRATIVE: CASE EVENT DATE: 20170803
